APPROVED DRUG PRODUCT: SOVUNA
Active Ingredient: HYDROXYCHLOROQUINE SULFATE
Strength: 300MG
Dosage Form/Route: TABLET;ORAL
Application: N214581 | Product #002
Applicant: NOVITIUM PHARMA LLC
Approved: Jan 14, 2022 | RLD: Yes | RS: Yes | Type: RX